FAERS Safety Report 5933150-9 (Version None)
Quarter: 2008Q4

REPORT INFORMATION
  Report Type: 
  Country: None (occurrence: None)
  Receive Date: 20081023
  Receipt Date: 20060322
  Transmission Date: 20090506
  Serious: Yes (Hospitalization, Other)
  Sender: FDA-Public Use
  Company Number: 2006AL001951

PATIENT
  Age: 86 Year
  Sex: Male

DRUGS (1)
  1. IBUPROFEN [Suspect]
     Indication: PAIN
     Dosage: 200 MG; PRN; PO
     Route: 048
     Dates: end: 20060123

REACTIONS (7)
  - ANAEMIA [None]
  - ASTHENIA [None]
  - BARRETT'S OESOPHAGUS [None]
  - GASTRIC ULCER [None]
  - GASTRITIS EROSIVE [None]
  - LETHARGY [None]
  - MELAENA [None]
